FAERS Safety Report 7418627-1 (Version None)
Quarter: 2011Q2

REPORT INFORMATION
  Report Type: 
  Country: None (occurrence: None)
  Receive Date: 20110415
  Receipt Date: 20110222
  Transmission Date: 20111010
  Serious: Yes (Other)
  Sender: FDA-Public Use
  Company Number: US-BAYER-201038076NA

PATIENT
  Age: 40 Year
  Sex: Female
  Weight: 88 kg

DRUGS (7)
  1. EFFEXOR [Concomitant]
     Indication: FIBROMYALGIA
     Dosage: UNK
     Dates: start: 20050101
  2. AMITIZA [Concomitant]
     Indication: IRRITABLE BOWEL SYNDROME
     Dosage: UNK
     Dates: start: 20050101
  3. FIORICET [Concomitant]
  4. YAZ [Suspect]
     Indication: ORAL CONTRACEPTION
     Route: 048
     Dates: start: 20080301, end: 20100501
  5. NSAID'S [Concomitant]
     Dosage: UNK UNK, PRN
  6. GABAPENTIN [Concomitant]
     Indication: FIBROMYALGIA
     Dosage: UNK
     Dates: start: 20080101
  7. ZEGERID [Concomitant]

REACTIONS (4)
  - CHOLECYSTITIS CHRONIC [None]
  - GALLBLADDER CHOLESTEROLOSIS [None]
  - BILIARY DYSKINESIA [None]
  - ABDOMINAL PAIN [None]
